FAERS Safety Report 4601471-8 (Version None)
Quarter: 2005Q1

REPORT INFORMATION
  Report Type: 
  Country: None (occurrence: None)
  Receive Date: 20050307
  Receipt Date: 20050307
  Transmission Date: 20050727
  Serious: Yes (Hospitalization)
  Sender: FDA-Public Use
  Company Number: None

PATIENT
  Age: 82 Year
  Sex: Male
  Weight: 69.2 kg

DRUGS (1)
  1. DIGOXIN [Suspect]
     Dosage: 0.25 MG PO QD
     Route: 048

REACTIONS (1)
  - THERAPEUTIC AGENT TOXICITY [None]
